FAERS Safety Report 9276304 (Version 1)
Quarter: 2013Q2

REPORT INFORMATION
  Report Type: Spontaneous
  Country: US (occurrence: None)
  Receive Date: 20130502
  Receipt Date: 20130502
  Transmission Date: 20140414
  Serious: Yes (Disabling)
  Sender: FDA-Public Use
  Company Number: None

PATIENT
  Age: 46 Year
  Sex: Male
  Weight: 70.31 kg

DRUGS (1)
  1. LEVOFLOXACIN [Suspect]
     Indication: BODY TEMPERATURE INCREASED
     Route: 048
     Dates: start: 20130412, end: 20130419

REACTIONS (8)
  - Tendon pain [None]
  - Body temperature decreased [None]
  - Burning sensation [None]
  - Muscular weakness [None]
  - Asthenia [None]
  - Depression suicidal [None]
  - Mobility decreased [None]
  - Pain in extremity [None]
